FAERS Safety Report 4534187-7 (Version None)
Quarter: 2004Q4

REPORT INFORMATION
  Report Type: 
  Country: None (occurrence: None)
  Receive Date: 20041214
  Receipt Date: 20040903
  Transmission Date: 20050328
  Serious: No
  Sender: FDA-Public Use
  Company Number: 2004233569US

PATIENT
  Age: 84 Year
  Sex: Female
  Weight: 61.2 kg

DRUGS (2)
  1. BEXTRA [Suspect]
     Indication: ARTHRITIS
     Dosage: 10 MG, QD, ORAL
     Route: 048
     Dates: start: 20030101
  2. FOSAMAX [Concomitant]

REACTIONS (3)
  - FALL [None]
  - OSTEOPOROSIS [None]
  - RASH [None]
